FAERS Safety Report 22212126 (Version 2)
Quarter: 2023Q2

REPORT INFORMATION
  Report Type: Report from Study
  Country: JP (occurrence: JP)
  Receive Date: 20230414
  Receipt Date: 20230512
  Transmission Date: 20230721
  Serious: Yes (Hospitalization, Other)
  Sender: FDA-Public Use
  Company Number: JP-GUERBETG_JAPAN-JP-20230031

PATIENT
  Age: 62 Year
  Sex: Female

DRUGS (3)
  1. LIPIODOL [Suspect]
     Active Substance: ETHIODIZED OIL
     Indication: Therapeutic embolisation
     Dosage: 7:3 MIXTURE OF ABSOLUTE ETHANOL AND IODIZED OIL OR A COMBINATION OF IODIZED OIL WITH GELATIN SPONGE
     Route: 013
     Dates: start: 201807, end: 201807
  2. GELATIN SPONGE [Concomitant]
     Indication: Therapeutic embolisation
     Route: 013
     Dates: start: 201807, end: 201807
  3. ABSOLUTE ETHANOL [Concomitant]
     Indication: Therapeutic embolisation
     Dosage: 7:3 MIXTURE OF ABSOLUTE ETHANOL AND IODIZED OIL
     Route: 013
     Dates: start: 201807, end: 201807

REACTIONS (2)
  - Pyelonephritis [Recovered/Resolved]
  - Product use in unapproved indication [Unknown]

NARRATIVE: CASE EVENT DATE: 20180719
